FAERS Safety Report 22842208 (Version 3)
Quarter: 2024Q2

REPORT INFORMATION
  Report Type: Report from Study
  Country: US (occurrence: US)
  Receive Date: 20230821
  Receipt Date: 20240610
  Transmission Date: 20240716
  Serious: Yes (Hospitalization, Other)
  Sender: FDA-Public Use
  Company Number: US-ABBVIE-5179391

PATIENT
  Sex: Male
  Weight: 61.234 kg

DRUGS (9)
  1. HUMIRA [Suspect]
     Active Substance: ADALIMUMAB
     Indication: Crohn^s disease
     Dosage: FORM STRENGTH: 40 MILLIGRAM?CITRATE FREE
     Route: 058
     Dates: start: 202309
  2. HUMIRA [Suspect]
     Active Substance: ADALIMUMAB
     Dosage: FORM STRENGTH: 40 MILLIGRAM
     Route: 058
     Dates: start: 201504, end: 202308
  3. SYMBICORT [Concomitant]
     Active Substance: BUDESONIDE\FORMOTEROL FUMARATE DIHYDRATE
     Indication: Inhalation therapy
  4. BRINZOLAMIDE [Concomitant]
     Active Substance: BRINZOLAMIDE
     Indication: Glaucoma
  5. PANTOPRAZOLE [Concomitant]
     Active Substance: PANTOPRAZOLE
     Indication: Product used for unknown indication
  6. DILTIAZEM [Concomitant]
     Active Substance: DILTIAZEM
     Indication: Cardiac disorder
  7. XARELTO [Concomitant]
     Active Substance: RIVAROXABAN
     Indication: Atrial fibrillation
  8. ALBUTEROL [Concomitant]
     Active Substance: ALBUTEROL
     Indication: Respiratory disorder
  9. Covid-19 vaccine [Concomitant]
     Indication: COVID-19 immunisation
     Route: 030

REACTIONS (18)
  - Oesophageal disorder [Recovered/Resolved]
  - Cardiac disorder [Unknown]
  - Asthenia [Recovered/Resolved]
  - Injury [Recovering/Resolving]
  - COVID-19 [Unknown]
  - Injury [Recovered/Resolved]
  - Lung disorder [Unknown]
  - Nasopharyngitis [Recovered/Resolved]
  - Weight decreased [Not Recovered/Not Resolved]
  - Oesophageal stenosis [Recovered/Resolved]
  - Memory impairment [Recovering/Resolving]
  - Respiratory syncytial virus infection [Recovered/Resolved]
  - Atrial fibrillation [Recovering/Resolving]
  - Heart rate increased [Recovered/Resolved]
  - Dysphagia [Recovered/Resolved]
  - Heart valve incompetence [Not Recovered/Not Resolved]
  - Chronic obstructive pulmonary disease [Not Recovered/Not Resolved]
  - Injection site bruising [Unknown]

NARRATIVE: CASE EVENT DATE: 20180101
